FAERS Safety Report 21812023 (Version 1)
Quarter: 2023Q1

REPORT INFORMATION
  Report Type: Spontaneous
  Country: US (occurrence: None)
  Receive Date: 20230103
  Receipt Date: 20230103
  Transmission Date: 20230417
  Serious: Yes (Hospitalization)
  Sender: FDA-Public Use
  Company Number: None

PATIENT
  Sex: Male

DRUGS (1)
  1. MIGLUSTAT [Suspect]
     Active Substance: MIGLUSTAT
     Indication: Niemann-Pick disease
     Dosage: 200MG 2 TIMES A DAY ORAL
     Route: 048
     Dates: start: 20210719

REACTIONS (3)
  - Asthenia [None]
  - Drooling [None]
  - Therapy interrupted [None]
